FAERS Safety Report 21845959 (Version 1)
Quarter: 2023Q1

REPORT INFORMATION
  Report Type: Report from Study
  Country: MX (occurrence: MX)
  Receive Date: 20230111
  Receipt Date: 20230111
  Transmission Date: 20230417
  Serious: Yes (Other)
  Sender: FDA-Public Use
  Company Number: MX-002147023-NVSC2022MX295594

PATIENT
  Age: 5 Year
  Sex: Male
  Weight: 20 kg

DRUGS (6)
  1. OMNITROPE [Suspect]
     Active Substance: SOMATROPIN
     Indication: Growth disorder
     Dosage: 0.9 MG, QD (FIRST DOSE, ADMINISTRATION IN ARM)
     Route: 058
     Dates: start: 20221213
  2. OMNITROPE [Suspect]
     Active Substance: SOMATROPIN
     Dosage: 0.9 MG, QD (SECOND DOSE, ADMINISTRATION IN ARM)
     Route: 058
     Dates: start: 20221214
  3. OMNITROPE [Suspect]
     Active Substance: SOMATROPIN
     Dosage: 0.9 MG, QD (THIRD DOSE, ADMINISTRATION IN THIGH
     Route: 058
     Dates: start: 20221215
  4. OMNITROPE [Suspect]
     Active Substance: SOMATROPIN
     Dosage: 0.9 MG, QD
     Route: 058
     Dates: start: 202212
  5. ERGOCALCIFEROL\RETINOL [Suspect]
     Active Substance: ERGOCALCIFEROL\RETINOL
     Indication: Hypovitaminosis
     Dosage: UNK
     Route: 065
  6. ERGOCALCIFEROL\RETINOL [Suspect]
     Active Substance: ERGOCALCIFEROL\RETINOL
     Indication: Growth hormone deficiency

REACTIONS (5)
  - Asthmatic crisis [Not Recovered/Not Resolved]
  - Cough [Not Recovered/Not Resolved]
  - Acne [Recovered/Resolved]
  - Rash [Recovered/Resolved]
  - Urticaria [Recovered/Resolved]

NARRATIVE: CASE EVENT DATE: 20221201
